FAERS Safety Report 8265735-1 (Version None)
Quarter: 2012Q2

REPORT INFORMATION
  Report Type: 
  Country: None (occurrence: None)
  Receive Date: 20120403
  Receipt Date: 20120319
  Transmission Date: 20120825
  Serious: Yes (Life-Threatening)
  Sender: FDA-Public Use
  Company Number: B0791081A

PATIENT
  Age: 41 Year
  Sex: Female

DRUGS (2)
  1. CEFUROXIME SODIUM [Suspect]
     Indication: PYREXIA
     Dosage: 1.5 GRAM(S) TWICE PER DAY, INTRAVENOUS
     Route: 042
  2. ASPIRIN [Concomitant]

REACTIONS (6)
  - DRUG DOSE OMISSION [None]
  - DRUG HYPERSENSITIVITY [None]
  - HYPERPYREXIA [None]
  - CHILLS [None]
  - NAUSEA [None]
  - RENAL FAILURE ACUTE [None]
